FAERS Safety Report 15678647 (Version 1)
Quarter: 2018Q4

REPORT INFORMATION
  Report Type: Spontaneous
  Country: US (occurrence: US)
  Receive Date: 20181130
  Receipt Date: 20181130
  Transmission Date: 20190205
  Serious: No
  Sender: FDA-Public Use
  Company Number: None

PATIENT
  Age: 43 Year
  Sex: Male
  Weight: 83.25 kg

DRUGS (2)
  1. BUPROPION HYDROCHLORIDE XL [Suspect]
     Active Substance: BUPROPION HYDROCHLORIDE
     Indication: DEPRESSION
     Dosage: ?          QUANTITY:1 TABLET(S);?
     Route: 048
     Dates: start: 20180124
  2. BUPROPION. [Concomitant]
     Active Substance: BUPROPION

REACTIONS (9)
  - Apathy [None]
  - Anger [None]
  - Suicidal ideation [None]
  - Product substitution issue [None]
  - Drug ineffective [None]
  - Feelings of worthlessness [None]
  - Abdominal discomfort [None]
  - Headache [None]
  - Depression [None]

NARRATIVE: CASE EVENT DATE: 20180124
